FAERS Safety Report 25203306 (Version 4)
Quarter: 2025Q4

REPORT INFORMATION
  Report Type: Spontaneous
  Country: CA (occurrence: CA)
  Receive Date: 20250416
  Receipt Date: 20251016
  Transmission Date: 20260117
  Serious: Yes (Other)
  Sender: CELLTRION
  Company Number: CA-PFIZER INC-202500076613

PATIENT

DRUGS (6)
  1. INFLIXIMAB [Suspect]
     Active Substance: INFLIXIMAB
     Indication: Crohn^s disease
     Dosage: 800 MICROGRAM/KILOGRAM
     Route: 042
  2. INFLIXIMAB [Suspect]
     Active Substance: INFLIXIMAB
     Dosage: 800 MICROGRAM/KILOGRAM
     Route: 042
  3. INFLIXIMAB [Suspect]
     Active Substance: INFLIXIMAB
     Dosage: 900 MILLIGRAM
     Route: 042
  4. INFLECTRA [Suspect]
     Active Substance: INFLIXIMAB-DYYB
     Indication: Crohn^s disease
     Dosage: 800 UG/KG, EVERY 6 WEEKS
     Route: 042
     Dates: start: 20230704, end: 2024
  5. INFLECTRA [Suspect]
     Active Substance: INFLIXIMAB-DYYB
     Dosage: 900 MG, EVERY 6 WEEKS
     Route: 042
     Dates: start: 2024
  6. INFLECTRA [Suspect]
     Active Substance: INFLIXIMAB-DYYB
     Dosage: 800 UG/KG, EVERY 6 WEEKS, (900MG, EVERY 6 WEEKS)
     Route: 042
     Dates: start: 20250401

REACTIONS (6)
  - Large intestine polyp [Recovered/Resolved]
  - Anorectal polyp [Recovered/Resolved]
  - Dysplasia [Recovered/Resolved]
  - Condition aggravated [Recovered/Resolved]
  - Rectal haemorrhage [Recovered/Resolved]
  - Intentional product use issue [Unknown]

NARRATIVE: CASE EVENT DATE: 20240901
